FAERS Safety Report 21728290 (Version 6)
Quarter: 2023Q2

REPORT INFORMATION
  Report Type: Report from Study
  Country: US (occurrence: US)
  Receive Date: 20221214
  Receipt Date: 20230514
  Transmission Date: 20230721
  Serious: Yes (Hospitalization)
  Sender: FDA-Public Use
  Company Number: US-ABBVIE-4234959

PATIENT
  Age: 71 Year
  Sex: Male
  Weight: 74.842 kg

DRUGS (9)
  1. HUMIRA [Suspect]
     Active Substance: ADALIMUMAB
     Indication: Crohn^s disease
     Route: 058
     Dates: start: 2018
  2. HUMIRA [Suspect]
     Active Substance: ADALIMUMAB
     Route: 058
  3. HUMIRA [Suspect]
     Active Substance: ADALIMUMAB
     Dosage: CITRATE FREE
     Route: 058
  4. VITAMIN B12 [Concomitant]
     Active Substance: CYANOCOBALAMIN
     Indication: Supplementation therapy
  5. DORZOLAMIDE [Concomitant]
     Active Substance: DORZOLAMIDE
     Indication: Glaucoma
  6. LEVOTHYROXINE [Concomitant]
     Active Substance: LEVOTHYROXINE
     Indication: Thyroid therapy
  7. FERROUS GLUCONATE [Concomitant]
     Active Substance: FERROUS GLUCONATE
     Indication: Anaemia
  8. LATANOPROST [Concomitant]
     Active Substance: LATANOPROST
     Indication: Glaucoma
  9. MINERALS\VITAMINS [Concomitant]
     Active Substance: MINERALS\VITAMINS
     Indication: Supplementation therapy

REACTIONS (8)
  - Crohn^s disease [Recovered/Resolved]
  - Volvulus [Recovered/Resolved]
  - Therapeutic product effect decreased [Unknown]
  - Gastric disorder [Unknown]
  - Blood iron decreased [Unknown]
  - Drug ineffective [Recovered/Resolved]
  - Drug specific antibody present [Unknown]
  - Drug level decreased [Unknown]

NARRATIVE: CASE EVENT DATE: 20221201
